FAERS Safety Report 8443841-6 (Version None)
Quarter: 2012Q2

REPORT INFORMATION
  Report Type: 
  Country: None (occurrence: None)
  Receive Date: 20120618
  Receipt Date: 20120605
  Transmission Date: 20120825
  Serious: Yes (Hospitalization)
  Sender: FDA-Public Use
  Company Number: US-BAYER-2012-056087

PATIENT
  Age: 26 Year
  Sex: Female
  Weight: 61.224 kg

DRUGS (17)
  1. DICLOFENAC SODIUM [Concomitant]
     Dosage: 75 MG, UNK
  2. IBUPROFEN [Concomitant]
     Dosage: OTC
  3. CENTRALLY ACTING SYMPATHOMIMETICS [Concomitant]
     Indication: ATTENTION DEFICIT/HYPERACTIVITY DISORDER
     Dosage: 50 MG, UNK
     Dates: start: 20090101
  4. ADVAIR DISKUS 100/50 [Concomitant]
     Dosage: 50 MCG, BID
  5. FISH OIL [Concomitant]
     Dosage: 1200 MG, QD
  6. VITAMIIN C [Concomitant]
     Dosage: OVER THE COUNTER
     Dates: start: 20070101, end: 20110101
  7. METHYLPREDNISOLONE [Concomitant]
     Dosage: 4 MG, UNK
     Dates: start: 20110124
  8. ALBUTEROL [Concomitant]
     Indication: ASTHMA
     Dosage: UNK
     Dates: start: 20030101, end: 20110101
  9. ADVAIR DISKUS 100/50 [Concomitant]
     Dosage: 100 MCG, BID
  10. MARIJUANA [Concomitant]
     Dosage: UNK
     Dates: start: 20101231
  11. YAZ [Suspect]
     Indication: CONTRACEPTION
     Dosage: UNK
     Dates: start: 20100812, end: 20110127
  12. EXCEDRIN (MIGRAINE) [Concomitant]
     Dosage: OVER THE COUNTER
     Dates: start: 20050101
  13. CENTRUM [Concomitant]
     Indication: VITAMIN SUPPLEMENTATION
     Dosage: 1 PILL OTC
  14. YAZ [Suspect]
     Indication: PREMENSTRUAL SYNDROME
  15. CENTRALLY ACTING SYMPATHOMIMETICS [Concomitant]
     Dosage: UNK
     Dates: start: 20101227
  16. HYDROCODONE BITARTRATE + ACETAMINOPHEN [Concomitant]
     Dosage: UNK
     Dates: start: 20110126
  17. ORTHO TRI-CYCLEN [Concomitant]

REACTIONS (5)
  - DEEP VEIN THROMBOSIS [None]
  - PAIN [None]
  - INJURY [None]
  - OEDEMA PERIPHERAL [None]
  - ARTHRALGIA [None]
